FAERS Safety Report 25256808 (Version 1)
Quarter: 2025Q2

REPORT INFORMATION
  Report Type: Spontaneous
  Country: FR (occurrence: FR)
  Receive Date: 20250430
  Receipt Date: 20250430
  Transmission Date: 20250716
  Serious: Yes (Other)
  Sender: TEVA
  Company Number: FR-TEVA-VS-3325169

PATIENT
  Age: 60 Year
  Sex: Female

DRUGS (1)
  1. COPAXONE [Suspect]
     Active Substance: GLATIRAMER ACETATE
     Indication: Multiple sclerosis
     Dosage: DOSAGE: 20 MG/ML
     Route: 065
     Dates: start: 2013

REACTIONS (6)
  - Injection site necrosis [Not Recovered/Not Resolved]
  - Injection site bruising [Unknown]
  - Injection site induration [Unknown]
  - Injection site pain [Unknown]
  - Injection site injury [Unknown]
  - Product quality issue [Unknown]

NARRATIVE: CASE EVENT DATE: 20250301
